FAERS Safety Report 9072034 (Version 1)
Quarter: 2013Q1

REPORT INFORMATION
  Report Type: Report from Study
  Country: US (occurrence: US)
  Receive Date: 20130129
  Receipt Date: 20130129
  Transmission Date: 20140127
  Serious: No
  Sender: FDA-Public Use
  Company Number: US-ABBOTT-12P-163-0929604-00

PATIENT
  Age: 38 Year
  Sex: Male

DRUGS (14)
  1. HUMIRA 40 MG/ 0.8 ML PRE-FILLED SYRINGE [Suspect]
     Indication: PSORIATIC ARTHROPATHY
     Route: 058
     Dates: start: 201202
  2. HUMIRA 40 MG/ 0.8 ML PRE-FILLED SYRINGE [Suspect]
     Route: 058
     Dates: start: 201204
  3. SLOW FE [Concomitant]
     Indication: ANAEMIA
  4. ONE A DAY MENS [Concomitant]
     Indication: PRODUCT USED FOR UNKNOWN INDICATION
     Dosage: VITAMIN
  5. CELEBREX [Concomitant]
     Indication: ARTHRITIS
  6. LOVAZA [Concomitant]
     Indication: BLOOD TRIGLYCERIDES INCREASED
  7. COQ10 [Concomitant]
     Indication: SUPPLEMENTATION THERAPY
     Dosage: 100MG DAILY
  8. LOVATROL [Concomitant]
     Indication: SUPPLEMENTATION THERAPY
     Dosage: 30MG DAILY
  9. BYSTOLIC [Concomitant]
     Indication: HYPERTENSION
     Dosage: 2.5MG DAILY
  10. VITAMIN D [Concomitant]
     Indication: VITAMIN D DECREASED
  11. XANAX [Concomitant]
     Indication: PRODUCT USED FOR UNKNOWN INDICATION
  12. TYLENOL [Concomitant]
     Indication: PRODUCT USED FOR UNKNOWN INDICATION
  13. B COMPLEX [Concomitant]
     Indication: VITAMIN SUPPLEMENTATION
     Dosage: 50MG DAILY
  14. FOLIC ACID [Concomitant]
     Indication: PRODUCT USED FOR UNKNOWN INDICATION

REACTIONS (1)
  - Drug ineffective [Not Recovered/Not Resolved]
